FAERS Safety Report 11216807 (Version 3)
Quarter: 2017Q4

REPORT INFORMATION
  Report Type: Spontaneous
  Country: US (occurrence: US)
  Receive Date: 20150624
  Receipt Date: 20171012
  Transmission Date: 20180320
  Serious: Yes (Hospitalization, Other)
  Sender: FDA-Public Use
  Company Number: US-DSJP-DSU-2015-119447

PATIENT

DRUGS (1)
  1. BENICAR [Suspect]
     Active Substance: OLMESARTAN MEDOXOMIL
     Indication: HYPERTENSION
     Dosage: 20 TO 40 MG QD
     Route: 048
     Dates: start: 2006, end: 20070605

REACTIONS (8)
  - Malabsorption [Unknown]
  - Acute kidney injury [Recovering/Resolving]
  - Fatigue [Unknown]
  - Acute prerenal failure [Unknown]
  - Haemorrhoids [Unknown]
  - Pancreatic failure [Unknown]
  - Renal failure [Unknown]
  - Decreased appetite [Unknown]
